FAERS Safety Report 5915839-0 (Version None)
Quarter: 2008Q4

REPORT INFORMATION
  Report Type: 
  Country: None (occurrence: None)
  Receive Date: 20081010
  Receipt Date: 20080929
  Transmission Date: 20090506
  Serious: Yes (Other)
  Sender: FDA-Public Use
  Company Number: US-PFIZER INC-2008082242

PATIENT
  Sex: Male
  Weight: 96.363 kg

DRUGS (9)
  1. VIAGRA [Suspect]
     Indication: ERECTILE DYSFUNCTION
     Route: 048
     Dates: start: 20050101, end: 20080901
  2. LYRICA [Interacting]
     Indication: ARTHRALGIA
     Route: 048
     Dates: start: 20080301
  3. LYRICA [Interacting]
     Indication: FIBROMYALGIA
  4. LYRICA [Interacting]
     Indication: PAIN IN EXTREMITY
  5. MORPHINE SULFATE INJ [Concomitant]
  6. NORVASC [Concomitant]
  7. PROPRANOLOL [Concomitant]
  8. OXYCODONE HCL [Concomitant]
  9. ANTIHYPERTENSIVES [Concomitant]

REACTIONS (2)
  - BLOOD PRESSURE INCREASED [None]
  - DRUG INTERACTION [None]
